FAERS Safety Report 7462445 (Version 2)
Quarter: 2014Q4

REPORT INFORMATION
  Report Type: Spontaneous
  Country: US (occurrence: US)
  Receive Date: 20100709
  Receipt Date: 20141211
  Transmission Date: 20150529
  Serious: Yes (Hospitalization, Other)
  Sender: FDA-Public Use
  Company Number: PHEH2010US03497

PATIENT
  Sex: Male

DRUGS (1)
  1. ZOMETA [Suspect]
     Active Substance: ZOLEDRONIC ACID
     Indication: PROSTATE CANCER METASTATIC
     Dosage: 4 MG, QMO
     Route: 041
     Dates: start: 20031120

REACTIONS (22)
  - Gastroenteritis [Recovered/Resolved]
  - Colon adenoma [Unknown]
  - Diverticulum intestinal [Unknown]
  - Chronic obstructive pulmonary disease [Recovering/Resolving]
  - Phlebolith [Unknown]
  - Rash [Unknown]
  - Dehydration [Recovered/Resolved]
  - Vomiting [Unknown]
  - Diarrhoea [Unknown]
  - Metastases to bone [Unknown]
  - Ureteric dilatation [Unknown]
  - Rib fracture [Unknown]
  - Osteoarthritis [Unknown]
  - Thrombocytopenia [Unknown]
  - Proctitis [Unknown]
  - Nausea [Unknown]
  - Body tinea [Unknown]
  - Pyrexia [Recovered/Resolved]
  - Osteosclerosis [Unknown]
  - Orthostatic hypotension [Recovered/Resolved]
  - Emphysema [Unknown]
  - Vertebral osteophyte [Unknown]
